FAERS Safety Report 5278062-1 (Version None)
Quarter: 2007Q1

REPORT INFORMATION
  Report Type: 
  Country: None (occurrence: None)
  Receive Date: 20070321
  Receipt Date: 20070312
  Transmission Date: 20070707
  Serious: Yes (Other)
  Sender: FDA-Public Use
  Company Number: 2007RR-06279

PATIENT
  Sex: Female
  Weight: 40 kg

DRUGS (7)
  1. CLARITHROMYCIN [Suspect]
     Indication: LOWER RESPIRATORY TRACT INFECTION
     Dosage: 250 MG, ORAL
     Route: 048
     Dates: start: 20070209, end: 20070212
  2. BECLOMETHASONE DIPROPIONATE [Concomitant]
  3. BENDROFLUAZIDE [Concomitant]
  4. CORACTEN XL [Concomitant]
  5. IREBESARTAN [Concomitant]
  6. SALBUTAMOL (SALBUTAMOL) [Concomitant]
  7. SALMETEROL [Concomitant]

REACTIONS (4)
  - ASTHENIA [None]
  - HYPONATRAEMIA [None]
  - MALAISE [None]
  - NAUSEA [None]
